FAERS Safety Report 9958567 (Version 2)
Quarter: 2014Q2

REPORT INFORMATION
  Report Type: Report from Study
  Country: FR (occurrence: FR)
  Receive Date: 20140305
  Receipt Date: 20140527
  Transmission Date: 20141212
  Serious: Yes (Hospitalization)
  Sender: FDA-Public Use
  Company Number: FR-ROCHE-1353988

PATIENT
  Age: 25 Year
  Sex: Male
  Weight: 70 kg

DRUGS (5)
  1. OBINUTUZUMAB [Suspect]
     Indication: DIFFUSE LARGE B-CELL LYMPHOMA
     Dosage: LAST DOSE PRIOR TO SAE WAS ON  27/DEC/2013
     Route: 065
     Dates: start: 20130913
  2. CYCLOPHOSPHAMIDE [Suspect]
     Indication: DIFFUSE LARGE B-CELL LYMPHOMA
     Route: 065
     Dates: start: 20130913, end: 20131227
  3. DOXORUBICINE [Suspect]
     Indication: DIFFUSE LARGE B-CELL LYMPHOMA
     Route: 065
     Dates: start: 20130913, end: 20131227
  4. VINCRISTINE [Suspect]
     Indication: DIFFUSE LARGE B-CELL LYMPHOMA
     Route: 065
     Dates: start: 20130913, end: 20131227
  5. PREDNISOLONE [Suspect]
     Indication: DIFFUSE LARGE B-CELL LYMPHOMA
     Route: 065
     Dates: start: 20130913, end: 20131227

REACTIONS (2)
  - Sepsis [Recovered/Resolved with Sequelae]
  - Infection [Recovered/Resolved with Sequelae]
